FAERS Safety Report 19894242 (Version 1)
Quarter: 2021Q3

REPORT INFORMATION
  Report Type: Spontaneous
  Country: US (occurrence: US)
  Receive Date: 20210928
  Receipt Date: 20210928
  Transmission Date: 20211014
  Serious: No
  Sender: FDA-Public Use
  Company Number: None

PATIENT
  Age: 84 Year
  Sex: Male
  Weight: 87.3 kg

DRUGS (8)
  1. LASIX 20MG [Concomitant]
  2. MULTAQ [Concomitant]
     Active Substance: DRONEDARONE
  3. MULTIVITAMIN [Concomitant]
     Active Substance: VITAMINS
  4. CAPECITABINE. [Suspect]
     Active Substance: CAPECITABINE
     Indication: COLORECTAL CANCER
     Dosage: ?          OTHER FREQUENCY:BID FOR 14/21 DAYS;?
     Route: 048
     Dates: start: 20210618
  5. TAMSULOSIN 0.4MG [Concomitant]
     Active Substance: TAMSULOSIN
  6. IMODIUM A?D 2MG [Concomitant]
  7. SIMVASTATIN 40MG [Concomitant]
     Active Substance: SIMVASTATIN
  8. CARVEDILOL 3.125MG [Concomitant]
     Active Substance: CARVEDILOL

REACTIONS (1)
  - Blister [None]

NARRATIVE: CASE EVENT DATE: 20210927
